FAERS Safety Report 8123342-5 (Version None)
Quarter: 2012Q1

REPORT INFORMATION
  Report Type: 
  Country: None (occurrence: None)
  Receive Date: 20120208
  Receipt Date: 20120125
  Transmission Date: 20120608
  Serious: Yes (Death, Hospitalization)
  Sender: FDA-Public Use
  Company Number: US-MUTUAL PHARMACEUTICAL COMPANY, INC.-CLHC20120014

PATIENT
  Age: 86 Year
  Sex: Female

DRUGS (2)
  1. COLCHICINE [Suspect]
     Indication: CONSTIPATION
  2. COLCHICINE [Suspect]
     Indication: GOUT
     Route: 048
     Dates: end: 20100101

REACTIONS (19)
  - ACCIDENTAL OVERDOSE [None]
  - APNOEA [None]
  - VOMITING [None]
  - BLOOD POTASSIUM DECREASED [None]
  - BASE EXCESS DECREASED [None]
  - DIARRHOEA [None]
  - BLOOD OSMOLARITY DECREASED [None]
  - BLOOD PH DECREASED [None]
  - TROPONIN INCREASED [None]
  - BLOOD BICARBONATE DECREASED [None]
  - NAUSEA [None]
  - CONSTIPATION [None]
  - DRUG ADMINISTRATION ERROR [None]
  - CARDIAC ARREST [None]
  - HYPOTENSION [None]
  - PCO2 DECREASED [None]
  - WHITE BLOOD CELL COUNT DECREASED [None]
  - OFF LABEL USE [None]
  - BLOOD SODIUM DECREASED [None]
